FAERS Safety Report 6502211-8 (Version None)
Quarter: 2009Q4

REPORT INFORMATION
  Report Type: 
  Country: None (occurrence: None)
  Receive Date: 20091216
  Receipt Date: 20091104
  Transmission Date: 20100525
  Serious: No
  Sender: FDA-Public Use
  Company Number: US-ABBOTT-09P-163-0607324-00

PATIENT
  Sex: Male

DRUGS (9)
  1. TRILIPIX [Suspect]
     Indication: DRUG USE FOR UNKNOWN INDICATION
     Dates: start: 20090401
  2. TRILIPIX [Suspect]
     Dates: end: 20091001
  3. UNKNOWN LIST OF MEDS [Concomitant]
     Indication: DRUG USE FOR UNKNOWN INDICATION
  4. ZANAC [Concomitant]
     Indication: DRUG USE FOR UNKNOWN INDICATION
  5. ACCURETIC [Concomitant]
     Indication: BLOOD PRESSURE
     Dosage: 20/12.5MG
  6. HSA [Concomitant]
     Indication: DRUG USE FOR UNKNOWN INDICATION
     Dosage: 2 PUFFS 4 X PER DAY AND PRN
  7. LIPITOR [Concomitant]
     Indication: DRUG USE FOR UNKNOWN INDICATION
  8. METOPROLOL TARTRATE [Concomitant]
     Indication: DRUG USE FOR UNKNOWN INDICATION
  9. FISH OIL [Concomitant]
     Indication: DRUG USE FOR UNKNOWN INDICATION

REACTIONS (3)
  - DIARRHOEA [None]
  - HEADACHE [None]
  - URINE FLOW DECREASED [None]
